FAERS Safety Report 8810187 (Version 1)
Quarter: 2012Q4

REPORT INFORMATION
  Report Type: Report from Study
  Country: GB (occurrence: GB)
  Receive Date: 20120926
  Receipt Date: 20120926
  Transmission Date: 20130627
  Serious: Yes (Life-Threatening, Hospitalization)
  Sender: FDA-Public Use
  Company Number: GB-ROCHE-1129508

PATIENT
  Age: 66 Year
  Sex: Male

DRUGS (11)
  1. AVASTIN [Suspect]
     Indication: GASTRIC CANCER
     Route: 042
     Dates: start: 20120320
  2. XELODA [Suspect]
     Indication: GASTRIC CANCER
     Route: 048
     Dates: start: 20120320
  3. EPIRUBICIN [Suspect]
     Indication: GASTRIC CANCER
     Route: 042
     Dates: start: 20120320
  4. CISPLATIN [Suspect]
     Indication: GASTRIC CANCER
     Route: 042
     Dates: start: 20120320
  5. DIGOXIN [Concomitant]
     Route: 048
  6. DOXAZOSIN [Concomitant]
     Route: 048
  7. BISOPROLOL [Concomitant]
     Route: 048
  8. AMLODIPINE [Concomitant]
     Route: 048
  9. RAMIPRIL [Concomitant]
     Route: 048
  10. SIMVASTATIN [Concomitant]
     Route: 048
  11. LANSOPRAZOLE [Concomitant]
     Route: 048

REACTIONS (1)
  - Post procedural complication [Recovered/Resolved]
